FAERS Safety Report 7232057-7 (Version None)
Quarter: 2011Q1

REPORT INFORMATION
  Report Type: 
  Country: None (occurrence: None)
  Receive Date: 20110118
  Receipt Date: 20110112
  Transmission Date: 20110831
  Serious: Yes (Hospitalization)
  Sender: FDA-Public Use
  Company Number: JO-BRISTOL-MYERS SQUIBB COMPANY-15487002

PATIENT
  Age: 27 Year
  Sex: Female

DRUGS (6)
  1. GASTER [Concomitant]
     Indication: RHEUMATOID ARTHRITIS
  2. APLACE [Concomitant]
     Indication: RHEUMATOID ARTHRITIS
  3. PREDONINE [Suspect]
     Indication: RHEUMATOID ARTHRITIS
  4. LOXONIN [Concomitant]
     Indication: RHEUMATOID ARTHRITIS
  5. ORENCIA [Suspect]
     Indication: RHEUMATOID ARTHRITIS
     Dosage: LAST DOSE RECEIVED ON 02DEC2010
     Route: 041
     Dates: start: 20101117
  6. ASPIRIN [Concomitant]
     Indication: RHEUMATOID ARTHRITIS

REACTIONS (2)
  - PERITONITIS [None]
  - ILEUS [None]
